FAERS Safety Report 12944299 (Version 6)
Quarter: 2017Q1

REPORT INFORMATION
  Report Type: Spontaneous
  Country: BR (occurrence: BR)
  Receive Date: 20161115
  Receipt Date: 20170221
  Transmission Date: 20170428
  Serious: Yes (Hospitalization, Other)
  Sender: FDA-Public Use
  Company Number: BR-ALEXION PHARMACEUTICALS INC.-A201608557

PATIENT
  Age: 33 Year
  Sex: Female

DRUGS (3)
  1. CICLOSPORINE [Concomitant]
     Active Substance: CYCLOSPORINE
     Indication: PRODUCT USED FOR UNKNOWN INDICATION
     Dosage: UNK
     Route: 065
  2. SOLIRIS [Suspect]
     Active Substance: ECULIZUMAB
     Indication: PAROXYSMAL NOCTURNAL HAEMOGLOBINURIA
     Dosage: 600 MG, QW
     Route: 042
     Dates: start: 20121220, end: 20130110
  3. SOLIRIS [Suspect]
     Active Substance: ECULIZUMAB
     Dosage: 900 MG, Q2W
     Route: 042
     Dates: start: 20130117

REACTIONS (15)
  - Blood pressure increased [Not Recovered/Not Resolved]
  - Anxiety [Unknown]
  - Headache [Not Recovered/Not Resolved]
  - Thrombosis [Not Recovered/Not Resolved]
  - Jaundice [Not Recovered/Not Resolved]
  - Haemorrhage [Unknown]
  - Intra-uterine contraceptive device removal [Unknown]
  - Blood bilirubin unconjugated increased [Not Recovered/Not Resolved]
  - Sinusitis [Unknown]
  - Abdominal pain [Recovered/Resolved]
  - Laboratory test abnormal [Recovered/Resolved]
  - Splenomegaly [Not Recovered/Not Resolved]
  - Aplasia [Unknown]
  - Platelet count decreased [Unknown]
  - Haemolysis [Unknown]

NARRATIVE: CASE EVENT DATE: 20161025
